FAERS Safety Report 9521211 (Version 2)
Quarter: 2013Q4

REPORT INFORMATION
  Report Type: Spontaneous
  Country: US (occurrence: None)
  Receive Date: 20130911
  Receipt Date: 20131211
  Transmission Date: 20140711
  Serious: Yes (Hospitalization, Other)
  Sender: FDA-Public Use
  Company Number: 2013US002374

PATIENT
  Age: 60 Year
  Sex: Female
  Weight: 54 kg

DRUGS (10)
  1. ICLUSIG [Suspect]
     Indication: CHRONIC MYELOID LEUKAEMIA
     Route: 048
  2. TRAZODONE (TRAZODONE) [Concomitant]
  3. MULTIVITAMIN (VITAMINS NOS) [Concomitant]
  4. VITAMIN B12 (CYANOCOBALAMIN AND ANALOGUES) [Concomitant]
  5. PAXIL (PAROXETINE HYDROCHLORIDE) [Concomitant]
  6. HYDROCODONE (HYDROCODONE) [Concomitant]
  7. VITAMIN D (COLECALCIFEROL) [Concomitant]
  8. VITAMIN C (VITAMIN C) [Concomitant]
  9. VITAMIN E (VITAMIN E) [Concomitant]
  10. VITAMIN B COMPLEX (VITAMIN B COMPLEX) [Concomitant]

REACTIONS (7)
  - Cholecystectomy [None]
  - Post procedural infection [None]
  - Pneumonia [None]
  - Abdominal pain upper [None]
  - Arthralgia [None]
  - Rash generalised [None]
  - Vomiting [None]
